FAERS Safety Report 9739391 (Version 1)
Quarter: 2013Q4

REPORT INFORMATION
  Report Type: Spontaneous
  Country: US (occurrence: US)
  Receive Date: 20131209
  Receipt Date: 20131209
  Transmission Date: 20140711
  Serious: Yes (Other)
  Sender: FDA-Public Use
  Company Number: US-BRISTOL-MYERS SQUIBB COMPANY-17093493

PATIENT
  Age: 4 Decade
  Sex: Female

DRUGS (1)
  1. IXEMPRA [Suspect]
     Indication: BREAST CANCER
     Dosage: DOSE TAKEN: 2 INFUSION

REACTIONS (3)
  - Metastases to central nervous system [Unknown]
  - Hypotension [Unknown]
  - Loss of consciousness [Unknown]
